FAERS Safety Report 10217411 (Version 2)
Quarter: 2014Q2

REPORT INFORMATION
  Report Type: Other
  Country: CA (occurrence: CA)
  Receive Date: 20140604
  Receipt Date: 20140604
  Transmission Date: 20141212
  Serious: Yes (Hospitalization, Other)
  Sender: FDA-Public Use
  Company Number: CA-GSKPPD-2014GSK032610

PATIENT
  Sex: Male

DRUGS (5)
  1. AVANDIA [Suspect]
     Indication: DIABETES MELLITUS
     Dosage: AVANDIA WAS NOT LISTED AMONG THE PATIENT^SDISCHARGE RECORDS.
     Route: 048
  2. ASPIRIN [Concomitant]
  3. CLOPIDOGREL [Concomitant]
  4. VASOTEC [Concomitant]
  5. METOPROLOL [Concomitant]

REACTIONS (4)
  - Hyperglycaemia [Recovered/Resolved]
  - Myocardial infarction [Recovered/Resolved]
  - Catheterisation cardiac [Recovered/Resolved]
  - Angina unstable [Recovered/Resolved]
